FAERS Safety Report 14711946 (Version 1)
Quarter: 2018Q2

REPORT INFORMATION
  Report Type: Spontaneous
  Country: US (occurrence: US)
  Receive Date: 20180403
  Receipt Date: 20180403
  Transmission Date: 20180711
  Serious: No
  Sender: FDA-Public Use
  Company Number: US-SA-2017SA067391

PATIENT
  Age: 27 Year
  Sex: Female

DRUGS (4)
  1. ALLEGRA [Suspect]
     Active Substance: FEXOFENADINE HYDROCHLORIDE
     Indication: DYSPNOEA
     Route: 065
     Dates: start: 20170410, end: 20170412
  2. ALLEGRA [Suspect]
     Active Substance: FEXOFENADINE HYDROCHLORIDE
     Route: 065
     Dates: start: 20170410, end: 20170412
  3. ALLEGRA [Suspect]
     Active Substance: FEXOFENADINE HYDROCHLORIDE
     Indication: SINUS DISORDER
     Route: 065
     Dates: start: 20170410, end: 20170412
  4. ALLEGRA [Suspect]
     Active Substance: FEXOFENADINE HYDROCHLORIDE
     Indication: OTORRHOEA
     Route: 065
     Dates: start: 20170410, end: 20170412

REACTIONS (4)
  - Dyspnoea [Unknown]
  - Expired product administered [Unknown]
  - Feeling abnormal [Unknown]
  - Vision blurred [Unknown]
